FAERS Safety Report 15286349 (Version 1)
Quarter: 2018Q3

REPORT INFORMATION
  Report Type: Spontaneous
  Country: IT (occurrence: IT)
  Receive Date: 20180816
  Receipt Date: 20180816
  Transmission Date: 20181010
  Serious: Yes (Death, Other)
  Sender: FDA-Public Use
  Company Number: IT-SA-2017SA201805

PATIENT
  Age: 64 Year
  Sex: Male
  Weight: 50 kg

DRUGS (4)
  1. JEVTANA [Suspect]
     Active Substance: CABAZITAXEL
     Indication: PROSTATE CANCER METASTATIC
     Dosage: 25 MG/M2,QCY
     Route: 041
     Dates: start: 20170824, end: 20170824
  2. JEVTANA [Suspect]
     Active Substance: CABAZITAXEL
     Dosage: 25 MG/M2,QCY
     Route: 041
     Dates: start: 20170913, end: 20170913
  3. NIVESTIM [Concomitant]
     Active Substance: FILGRASTIM
     Indication: PROPHYLAXIS
     Dosage: 20 IU,UNK
     Route: 058
     Dates: start: 20170915, end: 20170919
  4. PREDNISONE. [Concomitant]
     Active Substance: PREDNISONE
     Dosage: UNK UNK,UNK
     Route: 065
     Dates: start: 20170824, end: 20170920

REACTIONS (3)
  - Dyspnoea [Fatal]
  - Infection [Fatal]
  - Pulmonary toxicity [Fatal]

NARRATIVE: CASE EVENT DATE: 20170920
